FAERS Safety Report 6866675-2 (Version None)
Quarter: 2010Q3

REPORT INFORMATION
  Report Type: 
  Country: None (occurrence: None)
  Receive Date: 20100722
  Receipt Date: 20100719
  Transmission Date: 20110219
  Serious: Yes (Death)
  Sender: FDA-Public Use
  Company Number: MX-SANOFI-AVENTIS-2010SA041991

PATIENT
  Age: 72 Year
  Sex: Male
  Weight: 49 kg

DRUGS (5)
  1. TAXOTERE [Suspect]
     Indication: PROSTATE CANCER
     Route: 042
     Dates: start: 20091127, end: 20091127
  2. DEXAMETHASONE [Concomitant]
     Indication: CHEMOTHERAPY
     Route: 048
     Dates: start: 20091127, end: 20091218
  3. ONDANSETRON [Concomitant]
     Indication: CHEMOTHERAPY
     Route: 048
     Dates: start: 20091127, end: 20091218
  4. NITROFURANTOIN [Concomitant]
     Route: 048
  5. METHADONE HCL [Concomitant]

REACTIONS (2)
  - ANAEMIA [None]
  - CANDIDIASIS [None]
